FAERS Safety Report 8065477-1 (Version None)
Quarter: 2011Q4

REPORT INFORMATION
  Report Type: 
  Country: None (occurrence: None)
  Receive Date: 20111221
  Receipt Date: 20110628
  Transmission Date: 20120403
  Serious: Yes (Other)
  Sender: FDA-Public Use
  Company Number: PHHY2011US41230

PATIENT
  Age: 62 Year
  Sex: Female
  Weight: 66 kg

DRUGS (2)
  1. EXJADE [Suspect]
     Indication: NEOPLASM
     Dosage: 1500 MG, QD, ORAL ; 750 MG, BID, ORAL
     Route: 048
     Dates: start: 20100909, end: 20110321
  2. EXJADE [Suspect]
     Indication: NEOPLASM
     Dosage: 1500 MG, QD, ORAL ; 750 MG, BID, ORAL
     Route: 048
     Dates: start: 20110531, end: 20110613

REACTIONS (2)
  - RENAL IMPAIRMENT [None]
  - BLOOD CREATININE INCREASED [None]
